APPROVED DRUG PRODUCT: PACERONE
Active Ingredient: AMIODARONE HYDROCHLORIDE
Strength: 100MG
Dosage Form/Route: TABLET;ORAL
Application: A075135 | Product #002 | TE Code: AB
Applicant: UPSHER SMITH LABORATORIES LLC
Approved: Apr 12, 2005 | RLD: No | RS: No | Type: RX